FAERS Safety Report 10415820 (Version 3)
Quarter: 2014Q4

REPORT INFORMATION
  Report Type: Spontaneous
  Country: US (occurrence: US)
  Receive Date: 20140828
  Receipt Date: 20141014
  Transmission Date: 20150528
  Serious: No
  Sender: FDA-Public Use
  Company Number: US-PFIZER INC-2014238015

PATIENT
  Age: 76 Year
  Sex: Female
  Weight: 51.2 kg

DRUGS (37)
  1. ASPIRIN ENTERIC COATED K.P. [Concomitant]
     Active Substance: ASPIRIN
     Dosage: 81 ML, DAILY
  2. CLONAZEPAM. [Concomitant]
     Active Substance: CLONAZEPAM
     Dosage: 0.5 MG, 2X/DAY
     Dates: start: 201405
  3. FLUOXETINE [Concomitant]
     Active Substance: FLUOXETINE\FLUOXETINE HYDROCHLORIDE
  4. EFFEXOR XR [Suspect]
     Active Substance: VENLAFAXINE HYDROCHLORIDE
     Dosage: 300 MG, 2X/DAY
  5. PRISTIQ EXTENDED RELEASE [Concomitant]
     Active Substance: DESVENLAFAXINE SUCCINATE
     Dosage: 50 MG, DAILY FOR TWO WEEKS
  6. LACTULOSE. [Concomitant]
     Active Substance: LACTULOSE
     Dosage: 5 CC
  7. VITAMIN D [Concomitant]
     Active Substance: CHOLECALCIFEROL
     Dosage: 1000U/D HS
  8. VITAMIN D3 [Concomitant]
     Active Substance: CHOLECALCIFEROL
     Dosage: 100 UNITS/DAY
  9. HYDROCODONE [Concomitant]
     Active Substance: HYDROCODONE
     Dosage: 1 HS
  10. TYLENOL WITH CODEINE [Concomitant]
     Active Substance: ACETAMINOPHEN\CODEINE PHOSPHATE
     Dosage: 1-2 DAILY PRN
  11. CITALOPRAM [Concomitant]
     Active Substance: CITALOPRAM HYDROBROMIDE
  12. PRISTIQ EXTENDED RELEASE [Concomitant]
     Active Substance: DESVENLAFAXINE SUCCINATE
     Dosage: UKN
  13. DEPAKOTE [Concomitant]
     Active Substance: DIVALPROEX SODIUM
  14. PRIMIDONE. [Concomitant]
     Active Substance: PRIMIDONE
     Dosage: 250 MG, 2X/DAY
  15. ALENDRONATE [Concomitant]
     Active Substance: ALENDRONATE SODIUM
     Dosage: 70 MG, WEEKLY
  16. EFFEXOR XR [Suspect]
     Active Substance: VENLAFAXINE HYDROCHLORIDE
     Indication: DEPRESSION
     Dosage: 150 MG, 2X/DAY
     Route: 048
     Dates: start: 20140129
  17. VIIBRYD [Concomitant]
     Active Substance: VILAZODONE HYDROCHLORIDE
     Dosage: 40 MG, DAILY
  18. ZYPREXA [Concomitant]
     Active Substance: OLANZAPINE
  19. VITAMIN B12 [Concomitant]
     Active Substance: CYANOCOBALAMIN
     Dosage: 1000 MG, DAILY
  20. CALTRATE WITH VITAMIN D [Concomitant]
     Active Substance: CALCIUM CARBONATE\VITAMIN D
     Dosage: 600/400
  21. LACTULOSE. [Concomitant]
     Active Substance: LACTULOSE
     Dosage: 500 MG, UNK
  22. MIRTAZAPINE. [Concomitant]
     Active Substance: MIRTAZAPINE
     Dosage: 30 MG,  HS
     Dates: start: 20131024
  23. TRAZODONE [Concomitant]
     Active Substance: TRAZODONE HYDROCHLORIDE
     Dosage: 50 MG, HS
  24. CLONAZEPAM. [Concomitant]
     Active Substance: CLONAZEPAM
     Dosage: 0.5 MG, 3X/DAY, PRN
  25. LEXAPRO [Concomitant]
     Active Substance: ESCITALOPRAM OXALATE
  26. LAMICTAL [Concomitant]
     Active Substance: LAMOTRIGINE
  27. TOPAMAX [Concomitant]
     Active Substance: TOPIRAMATE
  28. TRAZODONE [Concomitant]
     Active Substance: TRAZODONE HYDROCHLORIDE
     Dosage: 100 MG, UNK
  29. MIRTAZAPINE. [Concomitant]
     Active Substance: MIRTAZAPINE
     Dosage: 15 MG, HS
  30. VIIBRYD [Concomitant]
     Active Substance: VILAZODONE HYDROCHLORIDE
     Dosage: 20 MG, DAILY
  31. AMITRIPTYLINE [Concomitant]
     Active Substance: AMITRIPTYLINE
  32. IMIQUIMOD. [Concomitant]
     Active Substance: IMIQUIMOD
  33. MELOXICAM. [Concomitant]
     Active Substance: MELOXICAM
     Dosage: 15 MG, DAILY
  34. PRIMIDONE. [Concomitant]
     Active Substance: PRIMIDONE
     Dosage: 250 MG, 3X/DAY
  35. TERBINAFINE [Concomitant]
     Active Substance: TERBINAFINE
     Dosage: 250 MG, DAILY
  36. TYLENOL WITH CODEINE [Concomitant]
     Active Substance: ACETAMINOPHEN\CODEINE PHOSPHATE
     Dosage: 4X/DAY
  37. RISPERDAL [Concomitant]
     Active Substance: RISPERIDONE

REACTIONS (10)
  - Nervousness [Not Recovered/Not Resolved]
  - Circadian rhythm sleep disorder [Not Recovered/Not Resolved]
  - Stress [Unknown]
  - Abnormal dreams [Not Recovered/Not Resolved]
  - Anxiety [Not Recovered/Not Resolved]
  - Fatigue [Not Recovered/Not Resolved]
  - Feeling jittery [Not Recovered/Not Resolved]
  - Decreased appetite [Not Recovered/Not Resolved]
  - Tremor [Not Recovered/Not Resolved]
  - Headache [Not Recovered/Not Resolved]

NARRATIVE: CASE EVENT DATE: 2014
